FAERS Safety Report 23238744 (Version 2)
Quarter: 2023Q4

REPORT INFORMATION
  Report Type: Report from Study
  Country: BR (occurrence: BR)
  Receive Date: 20231129
  Receipt Date: 20231229
  Transmission Date: 20240109
  Serious: Yes (Other)
  Sender: FDA-Public Use
  Company Number: BR-ABBVIE-5510245

PATIENT
  Sex: Female
  Weight: 60 kg

DRUGS (3)
  1. SKYRIZI [Suspect]
     Active Substance: RISANKIZUMAB-RZAA
     Indication: Psoriasis
     Dosage: FORM STRENGTH: 75 MILLIGRAM
     Route: 058
     Dates: start: 20210618, end: 20221015
  2. ROSUVASTATIN [Concomitant]
     Active Substance: ROSUVASTATIN
     Indication: Blood cholesterol
     Dosage: 10 MILLIGRAM
     Dates: start: 2022
  3. NEBIVOLOL [Concomitant]
     Active Substance: NEBIVOLOL
     Indication: Heart rate increased
     Dosage: 5 MILLIGRAM
     Dates: start: 2022

REACTIONS (6)
  - Adrenal adenoma [Not Recovered/Not Resolved]
  - Influenza [Unknown]
  - Polyp [Recovering/Resolving]
  - Gallbladder polyp [Recovering/Resolving]
  - Psoriasis [Not Recovered/Not Resolved]
  - Joint swelling [Unknown]

NARRATIVE: CASE EVENT DATE: 20210101
